FAERS Safety Report 6490219-0 (Version None)
Quarter: 2009Q4

REPORT INFORMATION
  Report Type: 
  Country: None (occurrence: None)
  Receive Date: 20091210
  Receipt Date: 20091210
  Transmission Date: 20100525
  Serious: Yes (Other)
  Sender: FDA-Public Use
  Company Number: None

PATIENT
  Age: 44 Year
  Sex: Female
  Weight: 65.7716 kg

DRUGS (1)
  1. CYMBALTA [Suspect]

REACTIONS (12)
  - APHTHOUS STOMATITIS [None]
  - CHILLS [None]
  - DIARRHOEA [None]
  - DIZZINESS [None]
  - DRUG WITHDRAWAL SYNDROME [None]
  - FATIGUE [None]
  - HEADACHE [None]
  - HYPERTENSION [None]
  - IRRITABILITY [None]
  - MYALGIA [None]
  - NAUSEA [None]
  - PARAESTHESIA [None]
